FAERS Safety Report 24410674 (Version 2)
Quarter: 2024Q4

REPORT INFORMATION
  Report Type: Spontaneous
  Country: SE (occurrence: SE)
  Receive Date: 20241008
  Receipt Date: 20241023
  Transmission Date: 20250114
  Serious: Yes (Life-Threatening, Hospitalization)
  Sender: TEVA
  Company Number: SE-TEVA-VS-3250465

PATIENT
  Age: 64 Year
  Sex: Male

DRUGS (6)
  1. CLOPIDOGREL [Suspect]
     Active Substance: CLOPIDOGREL BISULFATE
     Indication: Antiplatelet therapy
     Route: 065
  2. ASPIRIN [Suspect]
     Active Substance: ASPIRIN
     Indication: Antiplatelet therapy
     Route: 065
  3. TINZAPARIN [Suspect]
     Active Substance: TINZAPARIN
     Indication: Anticoagulant therapy
     Dosage: 175UNITS/KG
     Route: 065
  4. HEPARIN [Suspect]
     Active Substance: HEPARIN SODIUM
     Indication: Anticoagulant therapy
     Route: 065
  5. MILRINONE [Suspect]
     Active Substance: MILRINONE
     Indication: Pulmonary embolism
     Route: 065
  6. NITROGLYCERIN [Suspect]
     Active Substance: NITROGLYCERIN
     Indication: Pulmonary embolism
     Route: 065

REACTIONS (1)
  - Drug ineffective [Unknown]
